FAERS Safety Report 7886725-4 (Version None)
Quarter: 2011Q4

REPORT INFORMATION
  Report Type: 
  Country: None (occurrence: None)
  Receive Date: 20111102
  Receipt Date: 20110711
  Transmission Date: 20120403
  Serious: No
  Sender: FDA-Public Use
  Company Number: US-AMGEN-USASP2011035179

PATIENT
  Sex: Female

DRUGS (6)
  1. ENBREL [Suspect]
     Indication: RHEUMATOID ARTHRITIS
     Dosage: 50 MG, QWK
     Dates: start: 20110101
  2. LEXAPRO [Concomitant]
  3. LUNESTA [Concomitant]
  4. IRON [Concomitant]
  5. MULTI-VITAMINS [Concomitant]
  6. VITAMIN E                          /00110501/ [Concomitant]

REACTIONS (1)
  - OSTEOARTHRITIS [None]
